FAERS Safety Report 21605985 (Version 10)
Quarter: 2023Q1

REPORT INFORMATION
  Report Type: Report from Study
  Country: KR (occurrence: None)
  Receive Date: 20221117
  Receipt Date: 20230322
  Transmission Date: 20230418
  Serious: Yes (Death, Hospitalization)
  Sender: FDA-Public Use
  Company Number: KR-ROCHE-3218339

PATIENT
  Age: 65 Year
  Sex: Male
  Weight: 54.7 kg

DRUGS (42)
  1. MOSUNETUZUMAB [Suspect]
     Active Substance: MOSUNETUZUMAB
     Indication: B-cell lymphoma
     Dosage: START DATE OF MOST RECENT DOSE OF STUDY DRUG PRIOR TO SAE  08-NOV-2022, DOSE LAST STUDY DRUG ADMIN P
     Route: 058
     Dates: start: 20221020
  2. POLATUZUMAB VEDOTIN [Suspect]
     Active Substance: POLATUZUMAB VEDOTIN
     Indication: B-cell lymphoma
     Dosage: START DATE OF MOST RECENT DOSE OF STUDY DRUG PRIOR TO AE/SAE 20-OCT-2022, DOSE LAST STUDY DRUG ADMIN
     Route: 042
     Dates: start: 20221020
  3. AMARYL [Concomitant]
     Active Substance: GLIMEPIRIDE
     Indication: Diabetes mellitus
     Route: 048
     Dates: start: 2015, end: 20221123
  4. AMARYL [Concomitant]
     Active Substance: GLIMEPIRIDE
     Route: 048
     Dates: start: 20221204
  5. LIPITOR [Concomitant]
     Active Substance: ATORVASTATIN CALCIUM
     Indication: Dyslipidaemia
     Route: 048
     Dates: start: 2020, end: 20221108
  6. ASPIRIN [Concomitant]
     Active Substance: ASPIRIN
     Indication: Dyslipidaemia
     Route: 048
     Dates: start: 2021, end: 20221108
  7. ROXOL [AMBROXOL HYDROCHLORIDE] [Concomitant]
     Indication: Bronchitis
     Route: 048
     Dates: start: 20221018, end: 20221101
  8. ALLEGRA [Concomitant]
     Active Substance: FEXOFENADINE HYDROCHLORIDE
     Indication: Pruritus
     Route: 048
     Dates: start: 20221006, end: 20221018
  9. ALLEGRA [Concomitant]
     Active Substance: FEXOFENADINE HYDROCHLORIDE
     Route: 048
     Dates: start: 20221019, end: 20221108
  10. XYZAL [Concomitant]
     Active Substance: LEVOCETIRIZINE DIHYDROCHLORIDE
     Indication: Pruritus
     Route: 048
     Dates: start: 20221006, end: 20221020
  11. TANTUM [Concomitant]
     Active Substance: BENZYDAMINE HYDROCHLORIDE
     Dosage: 150MG/100ML
     Route: 048
     Dates: start: 20221018
  12. HEXAMEDINE [Concomitant]
     Dosage: 0.12% 100ML/
     Route: 048
     Dates: start: 20221018
  13. PHENIRAMINE [CHLORPHENAMINE MALEATE] [Concomitant]
     Indication: Pruritus
     Dosage: 1 AMPULE
     Route: 042
     Dates: start: 20221019, end: 20221019
  14. PHENIRAMINE [CHLORPHENAMINE MALEATE] [Concomitant]
     Dosage: 1 AMPULE
     Route: 042
     Dates: start: 20221020, end: 20221020
  15. PHENIRAMINE [CHLORPHENAMINE MALEATE] [Concomitant]
     Route: 042
     Dates: start: 20221027, end: 20221027
  16. PHENIRAMINE [CHLORPHENAMINE MALEATE] [Concomitant]
     Dosage: DRUG DOSE FIRST ADMINISTERED IS 1 AMPULE
     Route: 042
     Dates: start: 20221108, end: 20221108
  17. PHENIRAMINE [CHLORPHENAMINE MALEATE] [Concomitant]
     Dosage: 1 AMPULE
     Route: 042
     Dates: start: 20221226
  18. SETOPEN [Concomitant]
     Indication: Premedication
     Route: 048
     Dates: start: 20221020, end: 20221020
  19. SETOPEN [Concomitant]
     Route: 048
     Dates: start: 20221108, end: 20221108
  20. DEXAMETHASONE SODIUM PHOSPHATE [Concomitant]
     Active Substance: DEXAMETHASONE SODIUM PHOSPHATE
     Dosage: 4 AMPULE
     Route: 042
     Dates: start: 20221020, end: 20221020
  21. DEXAMETHASONE SODIUM PHOSPHATE [Concomitant]
     Active Substance: DEXAMETHASONE SODIUM PHOSPHATE
     Dosage: 4 AMPULE
     Route: 042
     Dates: start: 20221027, end: 20221027
  22. DEXAMETHASONE SODIUM PHOSPHATE [Concomitant]
     Active Substance: DEXAMETHASONE SODIUM PHOSPHATE
     Route: 042
     Dates: start: 20221108, end: 20221108
  23. DEXAMETHASONE SODIUM PHOSPHATE [Concomitant]
     Active Substance: DEXAMETHASONE SODIUM PHOSPHATE
     Dosage: 4 AMPULE
     Route: 042
     Dates: start: 20221226, end: 20221226
  24. DEXAMETHASONE SODIUM PHOSPHATE [Concomitant]
     Active Substance: DEXAMETHASONE SODIUM PHOSPHATE
     Dosage: 4 AMPULE
     Route: 042
     Dates: start: 20230116, end: 20230116
  25. RAMOSETRON HYDROCHLORIDE [Concomitant]
     Active Substance: RAMOSETRON HYDROCHLORIDE
     Dosage: 1 OTHER
     Route: 042
     Dates: start: 20221020, end: 20221020
  26. RAMOSETRON HYDROCHLORIDE [Concomitant]
     Active Substance: RAMOSETRON HYDROCHLORIDE
     Dosage: 1 OTHER
     Route: 042
     Dates: start: 20221206, end: 20221206
  27. RAMOSETRON HYDROCHLORIDE [Concomitant]
     Active Substance: RAMOSETRON HYDROCHLORIDE
     Dosage: 1 OTHER
     Route: 042
     Dates: start: 20221226
  28. KETOTOP EL [Concomitant]
     Indication: Arthralgia
     Dosage: 14
     Route: 062
     Dates: start: 20221021, end: 20221021
  29. TYLENOL 8HR [Concomitant]
     Active Substance: ACETAMINOPHEN
     Indication: Premedication
     Route: 048
     Dates: start: 20221027, end: 20221027
  30. TYLENOL 8HR [Concomitant]
     Active Substance: ACETAMINOPHEN
     Route: 048
     Dates: start: 20221226
  31. OLIMEL E [Concomitant]
     Active Substance: AMINO ACIDS\DEXTROSE\ELECTROLYTES NOS\SOYBEAN OIL
     Dosage: 1 OTHER
     Route: 042
     Dates: start: 20221112, end: 20221119
  32. MECKOOL [Concomitant]
     Dosage: 1 AMPULE
     Route: 042
     Dates: start: 20221113, end: 20221125
  33. DEXILANT [Concomitant]
     Active Substance: DEXLANSOPRAZOLE
     Route: 048
     Dates: start: 20221115, end: 20221121
  34. MAGNESIUM HYDROXIDE [Concomitant]
     Active Substance: MAGNESIUM HYDROXIDE
     Route: 048
     Dates: start: 20221116, end: 20221122
  35. SODIUM CHLORIDE [Concomitant]
     Active Substance: SODIUM CHLORIDE
     Dosage: 40MEQ/20ML?1 AMPULE
     Route: 042
     Dates: start: 20221117, end: 20221119
  36. DIABEX [Concomitant]
     Active Substance: METFORMIN HYDROCHLORIDE
     Indication: Diabetes mellitus
     Route: 048
     Dates: start: 20221124, end: 20221203
  37. GLIMEL (SOUTH KOREA) [Concomitant]
     Indication: Diabetes mellitus
     Route: 048
     Dates: start: 20221124, end: 20221203
  38. LINAGLIPTIN [Concomitant]
     Active Substance: LINAGLIPTIN
     Indication: Diabetes mellitus
     Route: 048
     Dates: start: 20221124, end: 20221203
  39. SULFAMETHOXAZOLE\TRIMETHOPRIM [Concomitant]
     Active Substance: SULFAMETHOXAZOLE\TRIMETHOPRIM
     Dosage: 80/400MG
     Route: 048
     Dates: start: 20221125
  40. ACTOZONE [Concomitant]
     Indication: Diabetes mellitus
     Route: 048
     Dates: start: 20221204
  41. JANUMET [Concomitant]
     Active Substance: METFORMIN HYDROCHLORIDE\SITAGLIPTIN PHOSPHATE
     Indication: Diabetes mellitus
     Route: 048
     Dates: start: 20221204
  42. MEGESTROL ACETATE [Concomitant]
     Active Substance: MEGESTROL ACETATE
     Indication: Hypophagia
     Dosage: 1 OTHER
     Route: 048
     Dates: start: 20221226

REACTIONS (2)
  - COVID-19 [Fatal]
  - Hyperglycaemia [Recovered/Resolved]

NARRATIVE: CASE EVENT DATE: 20221111
